FAERS Safety Report 5639838-1 (Version None)
Quarter: 2008Q1

REPORT INFORMATION
  Report Type: 
  Country: None (occurrence: None)
  Receive Date: 20080226
  Receipt Date: 20080226
  Transmission Date: 20080703
  Serious: No
  Sender: FDA-Public Use
  Company Number: None

PATIENT
  Sex: Male
  Weight: 38 kg

DRUGS (1)
  1. ONCASPAR [Suspect]
     Indication: ACUTE LYMPHOCYTIC LEUKAEMIA
     Dosage: 2990 1X IM
     Route: 030
     Dates: start: 20080130

REACTIONS (4)
  - ERYTHEMA [None]
  - RASH [None]
  - URTICARIA [None]
  - VOMITING [None]
